FAERS Safety Report 8914538 (Version 2)
Quarter: 2012Q4

REPORT INFORMATION
  Report Type: 
  Country: SE (occurrence: SE)
  Receive Date: 20121119
  Receipt Date: 20121231
  Transmission Date: 20130627
  Serious: Yes (Hospitalization)
  Sender: FDA-Public Use
  Company Number: SE-ROCHE-1156130

PATIENT
  Age: 53 Year
  Sex: Female

DRUGS (6)
  1. MABTHERA [Suspect]
     Indication: RHEUMATOID ARTHRITIS
     Dosage: 1 GMN
     Route: 042
     Dates: start: 20090825, end: 20120117
  2. MABTHERA [Suspect]
     Route: 042
     Dates: start: 201005
  3. MABTHERA [Suspect]
     Route: 042
     Dates: start: 201106
  4. METHYLPREDNISOLONE SODIUM SUCCINATE [Concomitant]
  5. DALACIN [Concomitant]
  6. DOXYFERM [Concomitant]

REACTIONS (2)
  - Bacterial infection [Not Recovered/Not Resolved]
  - Myalgia [Not Recovered/Not Resolved]
